FAERS Safety Report 9105891 (Version 1)
Quarter: 2013Q1

REPORT INFORMATION
  Report Type: Spontaneous
  Country: GB (occurrence: GB)
  Receive Date: 20130220
  Receipt Date: 20130220
  Transmission Date: 20140127
  Serious: Yes (Life-Threatening)
  Sender: FDA-Public Use
  Company Number: GB-BANPHARM-20130670

PATIENT
  Age: 24 Year
  Sex: Male

DRUGS (4)
  1. IBUPROFEN UNKNOWN PRODUCT [Suspect]
     Dosage: 75 MG,
     Dates: start: 20130124
  2. CITALOPRAM [Concomitant]
     Dates: start: 20130124
  3. CODEINE PHOSPHATE [Concomitant]
     Dates: start: 20130124
  4. DICLOFENAC SODIUM [Concomitant]
     Dates: start: 20130124

REACTIONS (1)
  - Anaphylactic reaction [Recovered/Resolved]
